FAERS Safety Report 8112929-1 (Version None)
Quarter: 2012Q1

REPORT INFORMATION
  Report Type: 
  Country: None (occurrence: None)
  Receive Date: 20120203
  Receipt Date: 20120124
  Transmission Date: 20120608
  Serious: Yes (Hospitalization)
  Sender: FDA-Public Use
  Company Number: FR-SANOFI-AVENTIS-2012SA004918

PATIENT
  Age: 67 Year
  Sex: Female

DRUGS (2)
  1. LASIX [Suspect]
     Route: 048
     Dates: start: 20111201
  2. DIGOXIN [Suspect]
     Route: 048
     Dates: start: 20111201, end: 20120101

REACTIONS (3)
  - BRADYCARDIA [None]
  - VOMITING [None]
  - NAUSEA [None]
